FAERS Safety Report 19906217 (Version 1)
Quarter: 2021Q4

REPORT INFORMATION
  Report Type: Report from Study
  Country: CA (occurrence: CA)
  Receive Date: 20211001
  Receipt Date: 20211001
  Transmission Date: 20220303
  Serious: Yes (Hospitalization, Other)
  Sender: FDA-Public Use
  Company Number: CA-BIOVITRUM-2021CA8629

PATIENT
  Sex: Male

DRUGS (2)
  1. KINERET [Suspect]
     Active Substance: ANAKINRA
     Indication: Product used for unknown indication
     Route: 058
  2. KINERET [Suspect]
     Active Substance: ANAKINRA
     Route: 042

REACTIONS (2)
  - Multisystem inflammatory syndrome in children [Unknown]
  - Incorrect route of product administration [Unknown]
